FAERS Safety Report 4640107-7 (Version None)
Quarter: 2005Q2

REPORT INFORMATION
  Report Type: 
  Country: None (occurrence: None)
  Receive Date: 20050415
  Receipt Date: 20050415
  Transmission Date: 20051028
  Serious: Yes (Other)
  Sender: FDA-Public Use
  Company Number: None

PATIENT
  Age: 13 Year
  Sex: Male

DRUGS (2)
  1. CITALOPRAM 40 MG [Suspect]
     Indication: GENERALISED ANXIETY DISORDER
     Dosage: 40 MG DAILY ORAL
     Route: 048
     Dates: start: 20041201, end: 20050330
  2. CITALOPRAM 40 MG [Suspect]
     Indication: MAJOR DEPRESSION
     Dosage: 40 MG DAILY ORAL
     Route: 048
     Dates: start: 20041201, end: 20050330

REACTIONS (3)
  - ABNORMAL BEHAVIOUR [None]
  - DRUG INEFFECTIVE [None]
  - PHARMACEUTICAL PRODUCT COMPLAINT [None]
